FAERS Safety Report 23441433 (Version 1)
Quarter: 2024Q1

REPORT INFORMATION
  Report Type: Spontaneous
  Country: US (occurrence: US)
  Receive Date: 20240125
  Receipt Date: 20240125
  Transmission Date: 20240410
  Serious: Yes (Other)
  Sender: FDA-Public Use
  Company Number: US-SA-SAC20240123000650

PATIENT
  Age: 56 Year
  Sex: Male

DRUGS (1)
  1. DUPIXENT [Suspect]
     Active Substance: DUPILUMAB
     Indication: Neurodermatitis
     Dosage: 300 MG, QOW
     Route: 058

REACTIONS (4)
  - Pancreatitis [Unknown]
  - Melaena [Unknown]
  - Haemoglobin decreased [Unknown]
  - Skin mass [Not Recovered/Not Resolved]

NARRATIVE: CASE EVENT DATE: 20231201
